FAERS Safety Report 5663698-6 (Version None)
Quarter: 2008Q1

REPORT INFORMATION
  Report Type: 
  Country: None (occurrence: None)
  Receive Date: 20080307
  Receipt Date: 20080222
  Transmission Date: 20080703
  Serious: Yes (Death, Life-Threatening)
  Sender: FDA-Public Use
  Company Number: 2008P1000028

PATIENT
  Age: 20 Year
  Sex: Male

DRUGS (6)
  1. BUSULFAN (BUSULFAN) [Suspect]
     Indication: STEM CELL TRANSPLANT
     Dosage: 42.64 ML;QD;IV
     Route: 042
     Dates: start: 20070724, end: 20070727
  2. VALPROATE SODIUM [Concomitant]
  3. FILGRASTIM [Concomitant]
  4. CYCLOSPORINE [Concomitant]
  5. METHYLPREDNISOLONE [Concomitant]
  6. SODIUM SUCCINATE [Concomitant]

REACTIONS (15)
  - ACUTE PULMONARY OEDEMA [None]
  - ANOREXIA [None]
  - BRADYCARDIA [None]
  - CARDIAC ARREST [None]
  - DIARRHOEA [None]
  - ENTEROCOCCAL SEPSIS [None]
  - HYPERBILIRUBINAEMIA [None]
  - NAUSEA [None]
  - OXYGEN SATURATION DECREASED [None]
  - PUPILLARY REFLEX IMPAIRED [None]
  - PYREXIA [None]
  - STEM CELL TRANSPLANT [None]
  - STOMATITIS [None]
  - TACHYPNOEA [None]
  - VOMITING [None]
